FAERS Safety Report 4868103-5 (Version None)
Quarter: 2005Q4

REPORT INFORMATION
  Report Type: 
  Country: None (occurrence: None)
  Receive Date: 20051229
  Receipt Date: 20051222
  Transmission Date: 20060501
  Serious: Yes (Other)
  Sender: FDA-Public Use
  Company Number: CZ-JNJFOC-20051204852

PATIENT
  Sex: Female

DRUGS (2)
  1. PRAMINO [Suspect]
     Indication: CONTRACEPTION
     Dosage: 1 TABLET/DAY
     Route: 048
  2. LETROX [Concomitant]
     Route: 065

REACTIONS (4)
  - DEPRESSED LEVEL OF CONSCIOUSNESS [None]
  - MIGRAINE [None]
  - RETINITIS [None]
  - VISUAL DISTURBANCE [None]
